FAERS Safety Report 24125149 (Version 1)
Quarter: 2024Q3

REPORT INFORMATION
  Report Type: Spontaneous
  Country: US (occurrence: US)
  Receive Date: 20240723
  Receipt Date: 20240723
  Transmission Date: 20241017
  Serious: No
  Sender: BRISTOL MYERS SQUIBB
  Company Number: US-BRISTOL-MYERS SQUIBB COMPANY-2024-115517

PATIENT
  Age: 8 Year
  Sex: Female
  Weight: 34 kg

DRUGS (1)
  1. THALOMID [Suspect]
     Active Substance: THALIDOMIDE
     Indication: Brain neoplasm malignant
     Dosage: EVERY NIGHT
     Route: 048
     Dates: start: 20240621

REACTIONS (5)
  - Fatigue [Unknown]
  - Decreased appetite [Unknown]
  - Alopecia [Unknown]
  - Constipation [Unknown]
  - Off label use [Unknown]
